FAERS Safety Report 10307382 (Version 1)
Quarter: 2014Q3

REPORT INFORMATION
  Report Type: Spontaneous
  Country: US (occurrence: None)
  Receive Date: 20140714
  Receipt Date: 20140714
  Transmission Date: 20150326
  Serious: Yes (Hospitalization)
  Sender: FDA-Public Use
  Company Number: None

PATIENT
  Age: 9 Year
  Sex: Female
  Weight: 39.1 kg

DRUGS (4)
  1. VINCRISTINE SULFATE. [Suspect]
     Active Substance: VINCRISTINE SULFATE
  2. METHOTREXATE [Suspect]
     Active Substance: METHOTREXATE
  3. DEXAMETHASONE. [Suspect]
     Active Substance: DEXAMETHASONE
  4. MERCAPTOPURINE. [Suspect]
     Active Substance: MERCAPTOPURINE

REACTIONS (12)
  - Wound infection staphylococcal [None]
  - Septic shock [None]
  - Neutropenia [None]
  - Agitation [None]
  - Cough [None]
  - Lethargy [None]
  - Decreased appetite [None]
  - Paronychia [None]
  - Lactic acidosis [None]
  - Pneumonia [None]
  - Haemoptysis [None]
  - Cardiac arrest [None]

NARRATIVE: CASE EVENT DATE: 20140616
